FAERS Safety Report 6026125-5 (Version None)
Quarter: 2008Q4

REPORT INFORMATION
  Report Type: 
  Country: None (occurrence: None)
  Receive Date: 20081230
  Receipt Date: 20081216
  Transmission Date: 20090506
  Serious: Yes (Disabling, Other)
  Sender: FDA-Public Use
  Company Number: TRP_05954_2008

PATIENT
  Sex: Male
  Weight: 85.2762 kg

DRUGS (3)
  1. INFERGEN [Suspect]
     Indication: HEPATITIS C
     Dosage: (15 ?G   QD SUBCUTANEOUS)
     Route: 058
     Dates: start: 20081023
  2. RIBAVIRIN [Suspect]
     Indication: HEPATITIS C
     Dosage: (600 MG BID ORAL)
     Route: 048
     Dates: start: 20081023
  3. GABAPENTIN [Concomitant]

REACTIONS (11)
  - ARTHROPATHY [None]
  - DIZZINESS [None]
  - HEAD INJURY [None]
  - HEADACHE [None]
  - HEMIPLEGIA [None]
  - INFLUENZA [None]
  - LIVER DISORDER [None]
  - MYALGIA [None]
  - OROPHARYNGEAL PAIN [None]
  - PAIN [None]
  - STOMATITIS [None]
